FAERS Safety Report 23952817 (Version 1)
Quarter: 2024Q2

REPORT INFORMATION
  Report Type: Spontaneous
  Country: US (occurrence: None)
  Receive Date: 20240607
  Receipt Date: 20240607
  Transmission Date: 20240716
  Serious: Yes (Hospitalization)
  Sender: FDA-Public Use
  Company Number: None

PATIENT
  Age: 6 Week
  Sex: Female
  Weight: 4.5 kg

DRUGS (2)
  1. HYOSYNE [Suspect]
     Active Substance: HYOSCYAMINE SULFATE
     Indication: Abdominal pain upper
     Dosage: 15 ML 4 TIMES A DAY ORAL?
     Route: 048
     Dates: start: 20240528, end: 20240531
  2. Nexium [Concomitant]

REACTIONS (3)
  - Product prescribing error [None]
  - Overdose [None]
  - Product complaint [None]

NARRATIVE: CASE EVENT DATE: 20240530
